FAERS Safety Report 25869749 (Version 1)
Quarter: 2025Q4

REPORT INFORMATION
  Report Type: Spontaneous
  Country: EU (occurrence: EU)
  Receive Date: 20251001
  Receipt Date: 20251001
  Transmission Date: 20260118
  Serious: Yes (Other)
  Sender: NOVARTIS
  Company Number: EU-002147023-NVSC2025ES147402

PATIENT
  Age: 65 Year
  Sex: Male

DRUGS (2)
  1. IMATINIB [Suspect]
     Active Substance: IMATINIB
     Indication: Chronic myeloid leukaemia
     Dosage: 400 MG (EVERY 24 HOURS)
     Route: 065
     Dates: start: 20230308, end: 202306
  2. ASPIRIN [Concomitant]
     Active Substance: ASPIRIN
     Indication: Product used for unknown indication
     Dosage: 100 MG (EVERY 24 HOURS)
     Route: 065

REACTIONS (10)
  - Chronic kidney disease [Recovering/Resolving]
  - Acute kidney injury [Recovering/Resolving]
  - Amnesia [Recovering/Resolving]
  - Eyelid oedema [Recovering/Resolving]
  - Asthenia [Recovering/Resolving]
  - Decreased appetite [Recovering/Resolving]
  - Vision blurred [Recovering/Resolving]
  - Disorientation [Recovering/Resolving]
  - Drug intolerance [Recovering/Resolving]
  - Anaemia [Recovering/Resolving]

NARRATIVE: CASE EVENT DATE: 20230623
